FAERS Safety Report 9005871 (Version 1)
Quarter: 2013Q1

REPORT INFORMATION
  Report Type: Spontaneous
  Country: US (occurrence: US)
  Receive Date: 20130109
  Receipt Date: 20130109
  Transmission Date: 20140127
  Serious: Yes (Other)
  Sender: FDA-Public Use
  Company Number: US-009507513-1301USA001547

PATIENT
  Age: 32 Year
  Sex: Female

DRUGS (8)
  1. SINGULAIR [Suspect]
     Indication: ASTHMA
     Dosage: 10 MG, UNK
  2. SINGULAIR [Suspect]
     Dosage: 10 MG, UNK
  3. SALBUTAMOL [Suspect]
     Indication: WHEEZING
     Dosage: IH
     Route: 055
  4. PREDNISONE [Suspect]
     Dosage: UNK, PO
     Route: 048
  5. CETIRIZINE HYDROCHLORIDE [Suspect]
     Dosage: 10 MG, UNK
  6. FEXOFENADINE HYDROCHLORIDE [Suspect]
     Dosage: 180 MG, UNK
  7. PULMICORT [Concomitant]
     Indication: WHEEZING
  8. CYCLOSPORINE [Concomitant]
     Indication: ASTHMA

REACTIONS (13)
  - Petechiae [Unknown]
  - Premature baby [Unknown]
  - Caesarean section [Unknown]
  - Weight decreased [Unknown]
  - No therapeutic response [Unknown]
  - Serum sickness [Unknown]
  - Procedural complication [Unknown]
  - Mouth ulceration [Unknown]
  - Drug resistance [Unknown]
  - Cushingoid [Unknown]
  - Condition aggravated [Unknown]
  - Asthma [Unknown]
  - Anaphylactic reaction [Unknown]
